FAERS Safety Report 24051247 (Version 2)
Quarter: 2024Q3

REPORT INFORMATION
  Report Type: Spontaneous
  Country: FR (occurrence: FR)
  Receive Date: 20240704
  Receipt Date: 20240709
  Transmission Date: 20241016
  Serious: Yes (Life-Threatening)
  Sender: PFIZER
  Company Number: None

PATIENT
  Age: 67 Year
  Sex: Female
  Weight: 50 kg

DRUGS (15)
  1. DOXORUBICIN HYDROCHLORIDE [Suspect]
     Active Substance: DOXORUBICIN HYDROCHLORIDE
     Indication: Diffuse large B-cell lymphoma
     Dosage: 6 CYCLICALS
     Route: 051
     Dates: start: 201812, end: 201812
  2. VINCRISTINE SULFATE [Suspect]
     Active Substance: VINCRISTINE SULFATE
     Indication: Diffuse large B-cell lymphoma
     Dosage: 6 CYCLICALS
     Route: 051
     Dates: start: 201812, end: 201812
  3. RITUXIMAB [Suspect]
     Active Substance: RITUXIMAB
     Dosage: UNK
  4. IBRUTINIB [Suspect]
     Active Substance: IBRUTINIB
     Dosage: UNK
  5. CYCLOPHOSPHAMIDE [Suspect]
     Active Substance: CYCLOPHOSPHAMIDE
     Indication: Waldenstrom^s macroglobulinaemia
     Dosage: 8 CYCLICALS
     Route: 051
     Dates: start: 201604, end: 201604
  6. CYCLOPHOSPHAMIDE [Suspect]
     Active Substance: CYCLOPHOSPHAMIDE
     Dosage: 6 CYCLICALS
     Route: 051
     Dates: start: 201812, end: 201812
  7. IFOSFAMIDE [Suspect]
     Active Substance: IFOSFAMIDE
     Indication: Marginal zone lymphoma
     Dosage: 1 CYCLICAL
     Route: 051
     Dates: start: 202305, end: 202305
  8. ETOPOSIDE [Suspect]
     Active Substance: ETOPOSIDE
     Indication: Marginal zone lymphoma
     Dosage: 1 CYCLICAL
     Route: 051
     Dates: start: 202305, end: 202305
  9. YESCARTA [Suspect]
     Active Substance: AXICABTAGENE CILOLEUCEL
     Indication: Marginal zone lymphoma
     Dosage: 1 DF, 1X/DAY (DISPERSION FOR INFUSION)
     Route: 051
     Dates: start: 20230608, end: 20230608
  10. BACTRIM [Concomitant]
     Active Substance: SULFAMETHOXAZOLE\TRIMETHOPRIM
     Dosage: UNK
  11. VALACYCLOVIR HYDROCHLORIDE [Concomitant]
     Active Substance: VALACYCLOVIR HYDROCHLORIDE
     Dosage: UNK
  12. CUVITRU [Concomitant]
     Active Substance: HUMAN IMMUNOGLOBULIN G
     Dosage: UNK (SOLUTION FOR SUBCUTANEOUS INJECTION)
  13. FOLIC ACID [Concomitant]
     Active Substance: FOLIC ACID
     Dosage: UNK
  14. DEXAMETHASONE ACETATE [Concomitant]
     Active Substance: DEXAMETHASONE ACETATE
     Dosage: UNK
  15. FILGRASTIM [Concomitant]
     Active Substance: FILGRASTIM
     Dosage: 30 MU/0.5 ML, SOLUTION FOR INJECTION OR INFUSION IN PRE-FILLED SYRINGE

REACTIONS (2)
  - Second primary malignancy [Recovering/Resolving]
  - Acute myeloid leukaemia [Recovering/Resolving]

NARRATIVE: CASE EVENT DATE: 20240215
